FAERS Safety Report 9093072 (Version 1)
Quarter: 2013Q1

REPORT INFORMATION
  Report Type: Spontaneous
  Country: IE (occurrence: IE)
  Receive Date: 20130218
  Receipt Date: 20130218
  Transmission Date: 20140127
  Serious: Yes (Other)
  Sender: FDA-Public Use
  Company Number: IE-BAXTER-2013BAX005239

PATIENT
  Sex: Male

DRUGS (4)
  1. GLUCOSE 5% [Suspect]
     Indication: PRODUCT USED FOR UNKNOWN INDICATION
     Route: 065
     Dates: start: 20120627, end: 20120627
  2. OXALIPLATIN [Suspect]
     Indication: CHEMOTHERAPY
     Route: 042
     Dates: start: 20120627, end: 20120627
  3. FLUOROURACIL [Concomitant]
     Indication: PRODUCT USED FOR UNKNOWN INDICATION
     Route: 065
     Dates: start: 20120627, end: 20120627
  4. FOLINIC ACID [Concomitant]
     Indication: PRODUCT USED FOR UNKNOWN INDICATION
     Route: 065
     Dates: start: 20120627, end: 20120627

REACTIONS (4)
  - Chest discomfort [Recovered/Resolved]
  - Pruritus [Recovered/Resolved]
  - Hyperhidrosis [Recovered/Resolved]
  - Erythema [Recovered/Resolved]
